FAERS Safety Report 23869545 (Version 3)
Quarter: 2024Q3

REPORT INFORMATION
  Report Type: Spontaneous
  Country: JP (occurrence: JP)
  Receive Date: 20240517
  Receipt Date: 20240729
  Transmission Date: 20241017
  Serious: No
  Sender: ABBVIE
  Company Number: JP-ABBVIE-5762879

PATIENT
  Age: 60 Year
  Sex: Male

DRUGS (2)
  1. RINVOQ [Suspect]
     Active Substance: UPADACITINIB
     Indication: Colitis ulcerative
     Dosage: LAST ADMIN : 2024
     Route: 048
     Dates: start: 20240321
  2. RINVOQ [Suspect]
     Active Substance: UPADACITINIB
     Indication: Colitis ulcerative
     Dosage: FIRST ADMIN DATE : 2024?DOSE REDUCED
     Route: 048

REACTIONS (2)
  - Benign neoplasm of ureter [Recovered/Resolved]
  - Haematuria [Recovered/Resolved]

NARRATIVE: CASE EVENT DATE: 20240101
